FAERS Safety Report 7812813-4 (Version None)
Quarter: 2011Q4

REPORT INFORMATION
  Report Type: 
  Country: None (occurrence: None)
  Receive Date: 20111013
  Receipt Date: 20111010
  Transmission Date: 20120403
  Serious: Yes (Other)
  Sender: FDA-Public Use
  Company Number: BR-ABBOTT-09P-020-0604236-00

PATIENT
  Sex: Male
  Weight: 85 kg

DRUGS (15)
  1. METHOTREXATE [Suspect]
     Indication: ANKYLOSING SPONDYLITIS
     Route: 048
     Dates: start: 20080801
  2. PREDNISONE [Suspect]
  3. PREDNISONE [Suspect]
  4. FOLIC ACID [Concomitant]
     Indication: RHEUMATOID ARTHRITIS
     Dosage: FORM STRENGTH: 5 MG, 2 PER WEEK
     Route: 048
     Dates: start: 20070801
  5. HUMIRA [Suspect]
     Indication: RHEUMATOID ARTHRITIS
     Route: 058
     Dates: start: 20080527
  6. HUMIRA [Suspect]
     Indication: ANKYLOSING SPONDYLITIS
  7. PREDNISONE [Suspect]
     Indication: PRODUCT USED FOR UNKNOWN INDICATION
  8. HYOSCYAMINE (BUSCOPAN) [Suspect]
     Indication: MIGRAINE
  9. METOCLOPRAMINE (PLASIL) [Suspect]
     Indication: VOMITING
     Route: 042
     Dates: start: 20080101
  10. CHLOROQUINE PHOSPHATE [Concomitant]
     Indication: PAIN
     Dosage: 3MG/40MG/100MG
     Route: 048
     Dates: start: 20060101
  11. METHOTREXATE [Suspect]
     Indication: RHEUMATOID ARTHRITIS
     Route: 048
     Dates: start: 20070801, end: 20080801
  12. PROMETHAZINE (FENERGAN) [Concomitant]
     Indication: ANAPHYLACTIC SHOCK
  13. PREDNISONE [Suspect]
  14. DICLOFENAC [Concomitant]
     Indication: ARTHRALGIA
     Dosage: GEL
  15. FOLIC ACID [Concomitant]
     Indication: ANKYLOSING SPONDYLITIS

REACTIONS (21)
  - HYPERTENSIVE CRISIS [None]
  - ARTHRITIS [None]
  - HEPATIC ENZYME ABNORMAL [None]
  - INAPPROPRIATE SCHEDULE OF DRUG ADMINISTRATION [None]
  - NAUSEA [None]
  - INJECTION SITE PAIN [None]
  - MUSCULOSKELETAL STIFFNESS [None]
  - MIGRAINE [None]
  - RASH MACULAR [None]
  - FUNGAL INFECTION [None]
  - INFECTION [None]
  - FATIGUE [None]
  - RHEUMATOID ARTHRITIS [None]
  - TENDON PAIN [None]
  - VOMITING [None]
  - ANAPHYLACTIC SHOCK [None]
  - PAIN [None]
  - TONSILLITIS [None]
  - METABOLIC ACIDOSIS [None]
  - ARTHRALGIA [None]
  - INFLAMMATION [None]
